FAERS Safety Report 6345000-X (Version None)
Quarter: 2009Q3

REPORT INFORMATION
  Report Type: 
  Country: None (occurrence: None)
  Receive Date: 20090909
  Receipt Date: 20090828
  Transmission Date: 20100115
  Serious: Yes (Other)
  Sender: FDA-Public Use
  Company Number: US-RANBAXY-2009US-24704

PATIENT

DRUGS (2)
  1. AMOXICILLIN [Suspect]
     Indication: DEVICE RELATED INFECTION
     Dosage: 500 MG, 4 BEFORE SURGERY
     Route: 048
     Dates: start: 20080415, end: 20080419
  2. AMOXICILLIN [Suspect]
     Dosage: 500 MG 1 EVERY 8 HRS
     Dates: start: 20080415, end: 20080419

REACTIONS (8)
  - ANAEMIA [None]
  - ASTHENIA [None]
  - CONFUSIONAL STATE [None]
  - MEMORY IMPAIRMENT [None]
  - OEDEMA PERIPHERAL [None]
  - PAIN [None]
  - POLYMYALGIA RHEUMATICA [None]
  - ROTATOR CUFF SYNDROME [None]
